FAERS Safety Report 13200320 (Version 1)
Quarter: 2017Q1

REPORT INFORMATION
  Report Type: Spontaneous
  Country: US (occurrence: US)
  Receive Date: 20170208
  Receipt Date: 20170208
  Transmission Date: 20170428
  Serious: No
  Sender: FDA-Public Use
  Company Number: US-AMGEN-USASP2016025236

PATIENT
  Age: 79 Year
  Sex: Female

DRUGS (1)
  1. NEULASTA [Suspect]
     Active Substance: PEGFILGRASTIM
     Indication: PRODUCT USED FOR UNKNOWN INDICATION
     Dosage: UNK
     Route: 065

REACTIONS (9)
  - Malaise [Unknown]
  - Anger [Unknown]
  - Agitation [Unknown]
  - Device issue [Unknown]
  - Pain [Unknown]
  - Feeling abnormal [Unknown]
  - Crying [Unknown]
  - Surgery [Unknown]
  - Fatigue [Unknown]
